FAERS Safety Report 16641421 (Version 1)
Quarter: 2019Q3

REPORT INFORMATION
  Report Type: Spontaneous
  Country: ES (occurrence: ES)
  Receive Date: 20190729
  Receipt Date: 20190729
  Transmission Date: 20191004
  Serious: Yes (Other)
  Sender: FDA-Public Use
  Company Number: PHHY2019ES171333

PATIENT
  Age: 45 Year
  Sex: Female

DRUGS (9)
  1. XEPLION [Suspect]
     Active Substance: PALIPERIDONE PALMITATE
     Indication: PERSONALITY DISORDER
     Dosage: 100 MG, Q4W
     Route: 030
     Dates: start: 2019
  2. LORMETAZEPAM STADA [Suspect]
     Active Substance: LORMETAZEPAM
     Indication: PERSONALITY DISORDER
     Dosage: 2 MG, QD
     Route: 048
     Dates: start: 2019
  3. INACID - SLOW RELEASE [Concomitant]
     Indication: ANKYLOSING SPONDYLITIS
     Dosage: 75 MG, QD
     Route: 048
     Dates: start: 2019
  4. OMEPRAZOL SANDOZ [Concomitant]
     Indication: GASTROOESOPHAGEAL REFLUX PROPHYLAXIS
     Dosage: 20 MG, QD
     Route: 048
     Dates: start: 2019
  5. ZALDIAR [Concomitant]
     Active Substance: ACETAMINOPHEN\TRAMADOL HYDROCHLORIDE
     Indication: PRODUCT USED FOR UNKNOWN INDICATION
     Dosage: UNK UNK, QD
     Route: 048
     Dates: start: 2019
  6. DOSTINEX [Concomitant]
     Active Substance: CABERGOLINE
     Indication: PRODUCT USED FOR UNKNOWN INDICATION
     Dosage: 0.5 MG, Q48H
     Route: 048
     Dates: start: 2019
  7. METFORMINA [Concomitant]
     Active Substance: METFORMIN HYDROCHLORIDE
     Indication: TYPE 2 DIABETES MELLITUS
     Dosage: 850 MG, QD
     Route: 048
  8. COSENTYX [Suspect]
     Active Substance: SECUKINUMAB
     Indication: ANKYLOSING SPONDYLITIS
     Dosage: 150 MG, QD
     Route: 030
     Dates: start: 2019
  9. DEPAKINE [Suspect]
     Active Substance: VALPROATE SODIUM
     Indication: PRODUCT USED FOR UNKNOWN INDICATION
     Dosage: 500 MG, QD
     Route: 048
     Dates: start: 2019

REACTIONS (1)
  - Deep vein thrombosis [Recovered/Resolved]

NARRATIVE: CASE EVENT DATE: 20190430
